FAERS Safety Report 5402815-X (Version None)
Quarter: 2007Q3

REPORT INFORMATION
  Report Type: 
  Country: None (occurrence: None)
  Receive Date: 20070801
  Receipt Date: 20070726
  Transmission Date: 20080115
  Serious: Yes (Life-Threatening)
  Sender: FDA-Public Use
  Company Number: FR-ASTRAZENECA-2007CG01113

PATIENT
  Age: 57 Year
  Sex: Male

DRUGS (6)
  1. DIPRIVAN [Suspect]
     Indication: GENERAL ANAESTHESIA
     Route: 042
     Dates: start: 20040915, end: 20040915
  2. CELOCURIN [Suspect]
     Indication: GENERAL ANAESTHESIA
     Route: 042
     Dates: start: 20040915, end: 20040915
  3. NIMBEX [Suspect]
     Indication: GENERAL ANAESTHESIA
     Route: 042
     Dates: start: 20040915, end: 20040915
  4. CHLORHEXIDINE GLUCONATE [Suspect]
     Indication: PROPHYLAXIS
     Dates: start: 20040915, end: 20040915
  5. SUFENTA [Suspect]
     Indication: GENERAL ANAESTHESIA
     Route: 042
     Dates: start: 20040915, end: 20040915
  6. TRIATEC [Concomitant]

REACTIONS (1)
  - ANAPHYLACTIC SHOCK [None]
